FAERS Safety Report 5721620-8 (Version None)
Quarter: 2008Q2

REPORT INFORMATION
  Report Type: 
  Country: None (occurrence: None)
  Receive Date: 20080429
  Receipt Date: 20070509
  Transmission Date: 20081010
  Serious: No
  Sender: FDA-Public Use
  Company Number: US-ASTRAZENECA-2007UW06023

PATIENT
  Age: 62 Year
  Sex: Female
  Weight: 43.1 kg

DRUGS (4)
  1. NEXIUM [Suspect]
     Indication: REFLUX GASTRITIS
     Route: 048
  2. NEXIUM [Suspect]
     Indication: GASTRIC ULCER
     Route: 048
  3. XANAX [Concomitant]
  4. FLAGYL [Concomitant]

REACTIONS (4)
  - ASTHENIA [None]
  - FATIGUE [None]
  - SALIVARY HYPERSECRETION [None]
  - WEIGHT DECREASED [None]
